FAERS Safety Report 10645940 (Version 2)
Quarter: 2014Q4

REPORT INFORMATION
  Report Type: Report from Study
  Country: NL (occurrence: NL)
  Receive Date: 20141211
  Receipt Date: 20141223
  Transmission Date: 20150529
  Serious: Yes (Hospitalization)
  Sender: FDA-Public Use
  Company Number: NL-ABBVIE-14P-114-1316338-00

PATIENT
  Age: 38 Year
  Sex: Female
  Weight: 73 kg

DRUGS (5)
  1. COLECALCIFEROL [Concomitant]
     Active Substance: CHOLECALCIFEROL
     Indication: PRODUCT USED FOR UNKNOWN INDICATION
     Dosage: 25000IE/ML
     Route: 048
  2. TAMOXIFEN [Concomitant]
     Active Substance: TAMOXIFEN
     Indication: BREAST CANCER FEMALE
     Route: 048
  3. ALENDRONINEZR [Concomitant]
     Indication: OSTEOPOROSIS PROPHYLAXIS
     Route: 048
  4. LUCRIN [Suspect]
     Active Substance: LEUPROLIDE ACETATE
     Indication: BREAST CANCER FEMALE
     Route: 058
     Dates: start: 20131231
  5. CALCI CHEW D3 [Concomitant]
     Active Substance: CALCIUM CARBONATE\CHOLECALCIFEROL
     Indication: OSTEOPOROSIS PROPHYLAXIS
     Dosage: 500MG/800IE
     Route: 048

REACTIONS (4)
  - Dehydration [Recovered/Resolved]
  - Disturbance in attention [Not Recovered/Not Resolved]
  - Influenza [Recovered/Resolved]
  - Mood swings [Not Recovered/Not Resolved]

NARRATIVE: CASE EVENT DATE: 2014
